FAERS Safety Report 5746912-8 (Version None)
Quarter: 2008Q2

REPORT INFORMATION
  Report Type: 
  Country: None (occurrence: None)
  Receive Date: 20080522
  Receipt Date: 20080424
  Transmission Date: 20081010
  Serious: No
  Sender: FDA-Public Use
  Company Number: US-BOEHRINGER INGELHEIM GMBH, GERMANY-2008-BP-06433BP

PATIENT
  Sex: Male

DRUGS (2)
  1. ZANTAC 150 [Suspect]
     Indication: HYPERCHLORHYDRIA
     Route: 048
     Dates: start: 20080408
  2. ZANTAC 150 [Suspect]
     Indication: STOMACH DISCOMFORT

REACTIONS (5)
  - BACK PAIN [None]
  - CHOKING SENSATION [None]
  - DIZZINESS [None]
  - MUSCLE TIGHTNESS [None]
  - SENSORY DISTURBANCE [None]
